FAERS Safety Report 13767252 (Version 1)
Quarter: 2017Q3

REPORT INFORMATION
  Report Type: Spontaneous
  Country: FR (occurrence: FR)
  Receive Date: 20170719
  Receipt Date: 20170719
  Transmission Date: 20171127
  Serious: Yes (Life-Threatening)
  Sender: FDA-Public Use
  Company Number: FR-ABBVIE-17K-056-2044011-00

PATIENT
  Age: 45 Year
  Sex: Male

DRUGS (1)
  1. HUMIRA [Suspect]
     Active Substance: ADALIMUMAB
     Indication: ANKYLOSING SPONDYLITIS
     Route: 058
     Dates: start: 2015

REACTIONS (2)
  - Pulmonary embolism [Recovered/Resolved with Sequelae]
  - Thrombophlebitis [Recovered/Resolved with Sequelae]

NARRATIVE: CASE EVENT DATE: 201706
